FAERS Safety Report 7061018-6 (Version None)
Quarter: 2010Q4

REPORT INFORMATION
  Report Type: 
  Country: None (occurrence: None)
  Receive Date: 20101026
  Receipt Date: 20101018
  Transmission Date: 20110411
  Serious: Yes (Other)
  Sender: FDA-Public Use
  Company Number: CH-PFIZER INC-2010112592

PATIENT
  Sex: Female

DRUGS (1)
  1. SORTIS [Suspect]
     Dosage: UNK

REACTIONS (1)
  - COLITIS COLLAGENOUS [None]
